FAERS Safety Report 17092344 (Version 1)
Quarter: 2019Q4

REPORT INFORMATION
  Report Type: Spontaneous
  Country: DK (occurrence: DK)
  Receive Date: 20191129
  Receipt Date: 20191129
  Transmission Date: 20200122
  Serious: Yes (Other)
  Sender: FDA-Public Use
  Company Number: DK-PFIZER INC-2019511019

PATIENT
  Age: 51 Year
  Sex: Female

DRUGS (4)
  1. PACLITAXEL. [Suspect]
     Active Substance: PACLITAXEL
     Indication: BREAST CANCER
     Dosage: 138 MG, CYCLIC (DOSE: 3 SERIES)
     Dates: start: 201804
  2. TAMOXIFEN [Concomitant]
     Active Substance: TAMOXIFEN
     Indication: HORMONE THERAPY
     Dosage: 20 MG, DAILY
     Route: 048
     Dates: start: 2018
  3. SENDOXAN [Suspect]
     Active Substance: CYCLOPHOSPHAMIDE
     Indication: BREAST CANCER
     Dosage: 1100 MG, CYCLIC (DOSE: 3 SERIES)
     Dates: start: 201804
  4. EPIRUBICIN HCL [Suspect]
     Active Substance: EPIRUBICIN HYDROCHLORIDE
     Indication: BREAST CANCER
     Dosage: 160 MG, CYCLIC (DOSE: 3 SERIES)
     Dates: start: 201804

REACTIONS (12)
  - Loose tooth [Not Recovered/Not Resolved]
  - Myalgia [Not Recovered/Not Resolved]
  - Disturbance in attention [Unknown]
  - Arthralgia [Not Recovered/Not Resolved]
  - Oral pain [Unknown]
  - Memory impairment [Not Recovered/Not Resolved]
  - Fatigue [Not Recovered/Not Resolved]
  - Oral mucosal erythema [Unknown]
  - Hypoaesthesia [Not Recovered/Not Resolved]
  - Neuropathy peripheral [Not Recovered/Not Resolved]
  - Oral fungal infection [Unknown]
  - Paraesthesia [Unknown]

NARRATIVE: CASE EVENT DATE: 2018
